FAERS Safety Report 6000282-9 (Version None)
Quarter: 2008Q4

REPORT INFORMATION
  Report Type: 
  Country: None (occurrence: None)
  Receive Date: 20081215
  Receipt Date: 20081211
  Transmission Date: 20090506
  Serious: Yes (Other)
  Sender: FDA-Public Use
  Company Number: US-ELI_LILLY_AND_COMPANY-US200812003255

PATIENT
  Sex: Male

DRUGS (2)
  1. HUMALOG [Suspect]
     Dosage: UNK, UNK
     Dates: start: 20040101
  2. INSULIN [Concomitant]

REACTIONS (6)
  - ARTERIOVENOUS FISTULA OPERATION [None]
  - ASTHENIA [None]
  - DIALYSIS [None]
  - LABORATORY TEST ABNORMAL [None]
  - LEG AMPUTATION [None]
  - MALIGNANT MELANOMA [None]
